FAERS Safety Report 17682789 (Version 1)
Quarter: 2020Q2

REPORT INFORMATION
  Report Type: Report from Study
  Country: None (occurrence: BR)
  Receive Date: 20200419
  Receipt Date: 20200419
  Transmission Date: 20200714
  Serious: Yes (Disabling, Other)
  Sender: FDA-Public Use
  Company Number: BR-ABBVIE-20K-020-3367807-00

PATIENT
  Age: 55 Year
  Sex: Male

DRUGS (1)
  1. HUMIRA [Suspect]
     Active Substance: ADALIMUMAB
     Indication: PSORIATIC ARTHROPATHY
     Dosage: ONE APPLICATION
     Route: 058
     Dates: start: 20130909

REACTIONS (8)
  - Asthenia [Unknown]
  - Weight decreased [Unknown]
  - Tuberculosis [Not Recovered/Not Resolved]
  - Hypophagia [Unknown]
  - Productive cough [Unknown]
  - Gastritis [Unknown]
  - Bacterial infection [Unknown]
  - Vomiting [Unknown]

NARRATIVE: CASE EVENT DATE: 202002
